FAERS Safety Report 12138568 (Version 1)
Quarter: 2016Q1

REPORT INFORMATION
  Report Type: Spontaneous
  Country: IT (occurrence: ES)
  Receive Date: 20160302
  Receipt Date: 20160302
  Transmission Date: 20160526
  Serious: Yes (Hospitalization)
  Sender: FDA-Public Use
  Company Number: ES-FRI-1000082923

PATIENT
  Age: 89 Year
  Sex: Female

DRUGS (7)
  1. SINTROM [Concomitant]
     Active Substance: ACENOCOUMAROL
     Dosage: 1MG
  2. GABAPENTINE [Concomitant]
     Active Substance: GABAPENTIN
     Dosage: 150MG
  3. NEBIVOLOL. [Suspect]
     Active Substance: NEBIVOLOL
     Dosage: 2.5MG
     Route: 048
     Dates: start: 20150725
  4. SEGURIL [Concomitant]
     Active Substance: FUROSEMIDE
  5. TELMISARTAN. [Concomitant]
     Active Substance: TELMISARTAN
     Dosage: 40MG
  6. CALCITRIOL. [Concomitant]
     Active Substance: CALCITRIOL
     Dosage: 0.25MG
  7. OMEPRAZOLE. [Concomitant]
     Active Substance: OMEPRAZOLE
     Dosage: 20MG

REACTIONS (2)
  - Bundle branch block right [Recovering/Resolving]
  - Bradycardia [Recovering/Resolving]

NARRATIVE: CASE EVENT DATE: 20150725
